FAERS Safety Report 5770270-6 (Version None)
Quarter: 2008Q2

REPORT INFORMATION
  Report Type: 
  Country: None (occurrence: None)
  Receive Date: 20080613
  Receipt Date: 20080523
  Transmission Date: 20081010
  Serious: No
  Sender: FDA-Public Use
  Company Number: US-ABBOTT-08P-163-0449415-00

PATIENT
  Sex: Female
  Weight: 113.5 kg

DRUGS (11)
  1. HUMIRA [Suspect]
     Indication: CROHN'S DISEASE
     Route: 058
     Dates: start: 20080325
  2. ENTECORT [Concomitant]
     Indication: CROHN'S DISEASE
     Route: 048
     Dates: start: 20080101
  3. VENLAFAXINE HCL [Concomitant]
     Indication: DEPRESSION
     Route: 048
  4. HYDROCODONE [Concomitant]
     Indication: PAIN
     Dosage: 5/500MG
     Route: 048
  5. LAMOTOL [Concomitant]
     Indication: DIARRHOEA
     Route: 048
  6. PROCHLORPERAZINE EDISYLATE [Concomitant]
     Indication: NAUSEA
     Route: 048
  7. LANSOPRAZOLE [Concomitant]
     Indication: GASTROOESOPHAGEAL REFLUX DISEASE
     Route: 048
  8. ASPIRIN [Concomitant]
     Indication: ANGINA PECTORIS
     Route: 048
  9. ATENOLOL [Concomitant]
     Indication: HYPERTENSION
     Route: 048
  10. NIFEDIPINE [Concomitant]
     Indication: HYPERTENSION
     Route: 048
  11. MAXZIDE [Concomitant]
     Indication: DIURETIC THERAPY
     Dosage: 75/50MG: 1/2 TAB QAM, 1/2 TAB QPM
     Route: 048

REACTIONS (3)
  - DRY EYE [None]
  - INJECTION SITE HAEMORRHAGE [None]
  - OCULAR MYASTHENIA [None]
